FAERS Safety Report 18559074 (Version 1)
Quarter: 2020Q4

REPORT INFORMATION
  Report Type: Spontaneous
  Country: US (occurrence: US)
  Receive Date: 20201127
  Receipt Date: 20201127
  Transmission Date: 20210114
  Serious: Yes (Other)
  Sender: FDA-Public Use
  Company Number: None

PATIENT
  Age: 54 Year
  Sex: Female
  Weight: 72 kg

DRUGS (8)
  1. GLIMMPRIDE [Concomitant]
  2. IMITREX [Concomitant]
     Active Substance: SUMATRIPTAN SUCCINATE
  3. VITAMIN D [Concomitant]
     Active Substance: VITAMIN D NOS
  4. AIMOVIG [Suspect]
     Active Substance: ERENUMAB-AOOE
     Indication: MIGRAINE PROPHYLAXIS
     Dates: start: 20200330, end: 20200531
  5. METFIRMIN [Concomitant]
  6. VITAMIN B12 [Concomitant]
     Active Substance: CYANOCOBALAMIN
  7. MAGNESIUM [Concomitant]
     Active Substance: MAGNESIUM
  8. 5HTP [Concomitant]

REACTIONS (8)
  - Insomnia [None]
  - Neuropathy peripheral [None]
  - Drug effect less than expected [None]
  - Myalgia [None]
  - Glycosylated haemoglobin increased [None]
  - Pain [None]
  - Loss of personal independence in daily activities [None]
  - Thirst [None]

NARRATIVE: CASE EVENT DATE: 20200330
